FAERS Safety Report 6028537-2 (Version None)
Quarter: 2008Q4

REPORT INFORMATION
  Report Type: 
  Country: None (occurrence: None)
  Receive Date: 20081231
  Receipt Date: 20081231
  Transmission Date: 20090506
  Serious: Yes (Hospitalization)
  Sender: FDA-Public Use
  Company Number: None

PATIENT
  Age: 65 Year
  Sex: Male

DRUGS (1)
  1. PIPERACILLIN AND TAZOBACTAM [Suspect]
     Indication: PANCREATITIS CHRONIC
     Dosage: 4.5 GM TID IV
     Route: 042
     Dates: start: 20080602, end: 20080605

REACTIONS (1)
  - LEUKOPENIA [None]
